FAERS Safety Report 6835244-2 (Version None)
Quarter: 2010Q3

REPORT INFORMATION
  Report Type: 
  Country: None (occurrence: None)
  Receive Date: 20100713
  Receipt Date: 20100705
  Transmission Date: 20110219
  Serious: Yes (Hospitalization)
  Sender: FDA-Public Use
  Company Number: JP-ELI_LILLY_AND_COMPANY-JP201007000782

PATIENT
  Age: 66 Year
  Sex: Male
  Weight: 49 kg

DRUGS (8)
  1. PEMETREXED [Suspect]
     Indication: LUNG ADENOCARCINOMA STAGE IV
     Dosage: 760 MG (500MG/M2), OTHER
     Route: 042
     Dates: start: 20100105, end: 20100309
  2. CISPLATIN [Concomitant]
     Indication: LUNG ADENOCARCINOMA STAGE IV
     Dosage: 115 MG (75 MG/M2), OTHER
     Route: 042
     Dates: start: 20100105, end: 20100309
  3. PANVITAN [Concomitant]
     Dosage: 1 G, DAILY (1/D)
     Route: 048
     Dates: start: 20091218, end: 20100417
  4. HYDROXOCOBALAMIN ACETATE [Concomitant]
     Dosage: 1 MG, DAILY (1/D)
     Route: 030
     Dates: start: 20091218, end: 20100412
  5. CODEINE PHOSPHATE [Concomitant]
     Dosage: UNK, UNK
     Route: 048
  6. MAGNESIUM OXIDE [Concomitant]
     Route: 048
  7. PANTOSIN [Concomitant]
     Route: 048
     Dates: start: 20100118
  8. PURSENNID /00571902/ [Concomitant]
     Route: 048
     Dates: start: 20100105

REACTIONS (3)
  - DEHYDRATION [None]
  - ENTEROCOLITIS [None]
  - RENAL IMPAIRMENT [None]
